FAERS Safety Report 18424307 (Version 1)
Quarter: 2020Q4

REPORT INFORMATION
  Report Type: Report from Study
  Country: US (occurrence: US)
  Receive Date: 20201025
  Receipt Date: 20201025
  Transmission Date: 20210114
  Serious: Yes (Hospitalization)
  Sender: FDA-Public Use
  Company Number: US-ROCHE-2554571

PATIENT
  Age: 75 Year
  Sex: Male

DRUGS (9)
  1. IBRUTINIB [Suspect]
     Active Substance: IBRUTINIB
     Indication: DIFFUSE LARGE B-CELL LYMPHOMA
     Dosage: ON DAY 1-14, THE LAST DOSE OF IBRUTINIB PRIOR TO THE SAE WAS ADMINISTERED ON 16/FEB/2020.
     Route: 048
     Dates: start: 20200118
  2. ACYCLOVIR. [Concomitant]
     Active Substance: ACYCLOVIR
     Route: 048
     Dates: start: 20191201
  3. ONDANSETRON [Concomitant]
     Active Substance: ONDANSETRON
     Dosage: AS REQUIRED
     Route: 065
     Dates: start: 20200118
  4. LOPERAMIDE [Concomitant]
     Active Substance: LOPERAMIDE
     Dosage: AS REQUIRED
     Dates: start: 20200118
  5. OBINUTUZUMAB. [Suspect]
     Active Substance: OBINUTUZUMAB
     Indication: DIFFUSE LARGE B-CELL LYMPHOMA
     Dosage: ON DAY 1 AND 2, THE LAST DOSE OF OBINUTUZUMAB PRIOR TO THE SAE WERE ADMINISTERED ON 09/FEB/2020
     Route: 042
     Dates: start: 20200118
  6. LENALIDOMIDE [Suspect]
     Active Substance: LENALIDOMIDE
     Indication: DIFFUSE LARGE B-CELL LYMPHOMA
     Dosage: ON DAY 1-14 DAY, THE LAST DOSE OF LENALIDOMIDE PRIOR TO THE SAE WERE ADMINISTERED ON 17/FEB/2020.
     Route: 048
     Dates: start: 20200118
  7. VENETOCLAX. [Suspect]
     Active Substance: VENETOCLAX
     Indication: DIFFUSE LARGE B-CELL LYMPHOMA
     Dosage: ON DAYS 2-14, THE MOST RECENT DOSE OF VENETOCLAX PRIOR TO THE SAE WERE ADMINISTERED ON 17/FEB/2020.
     Route: 048
     Dates: start: 20200119
  8. PREDNISONE. [Suspect]
     Active Substance: PREDNISONE
     Indication: DIFFUSE LARGE B-CELL LYMPHOMA
     Dosage: ON 1-7 DAY, THE LAST DOSE OF PREDNISONE PRIOR TO THE SAE WERE ADMINISTERED ON 13/FEB/2020.
     Route: 048
     Dates: start: 20200118
  9. PANTOPRAZOLE [Concomitant]
     Active Substance: PANTOPRAZOLE
     Route: 065
     Dates: start: 20200118

REACTIONS (1)
  - Atrial flutter [Recovered/Resolved]

NARRATIVE: CASE EVENT DATE: 20200218
